FAERS Safety Report 8966396 (Version 2)
Quarter: 2013Q1

REPORT INFORMATION
  Report Type: Report from Study
  Country: CA (occurrence: CA)
  Receive Date: 20121217
  Receipt Date: 20130111
  Transmission Date: 20140127
  Serious: Yes (Other)
  Sender: FDA-Public Use
  Company Number: CA-JNJFOC-20121205154

PATIENT
  Sex: Female
  Weight: 114.2 kg

DRUGS (7)
  1. REMICADE [Suspect]
     Indication: CROHN^S DISEASE
     Route: 042
     Dates: start: 20111205
  2. ZOPICLONE [Concomitant]
     Route: 065
  3. DIFLUCAN [Concomitant]
     Route: 065
  4. TRAZODONE [Concomitant]
     Route: 065
  5. METHOTREXATE [Concomitant]
     Route: 065
  6. VITAMIN D [Concomitant]
     Route: 065
  7. FOLIC ACID W/VITAMIN B12 [Concomitant]
     Route: 065

REACTIONS (1)
  - Mineral supplementation [Unknown]
